FAERS Safety Report 5658029-1 (Version None)
Quarter: 2008Q1

REPORT INFORMATION
  Report Type: 
  Country: None (occurrence: None)
  Receive Date: 20080310
  Receipt Date: 20070308
  Transmission Date: 20080703
  Serious: No
  Sender: FDA-Public Use
  Company Number: US-BAYER-200613913BCC

PATIENT
  Age: 59 Year
  Sex: Female
  Weight: 43 kg

DRUGS (7)
  1. ALEVE [Suspect]
     Indication: ARTHRALGIA
     Dosage: UNIT DOSE: 220 MG
     Route: 048
     Dates: start: 20060907
  2. ALEVE [Suspect]
     Dosage: UNIT DOSE: 220 MG
     Route: 048
     Dates: start: 20060908
  3. ALEVE [Suspect]
     Dosage: UNIT DOSE: 220 MG
     Route: 048
     Dates: start: 20070304
  4. BONIVA [Concomitant]
  5. MINOCIN [Concomitant]
  6. GUAIFENEX [Concomitant]
  7. FISH OIL [Concomitant]

REACTIONS (5)
  - ARTHRALGIA [None]
  - EYE INJURY [None]
  - OEDEMA PERIPHERAL [None]
  - STOMACH DISCOMFORT [None]
  - SWELLING FACE [None]
